FAERS Safety Report 12118620 (Version 1)
Quarter: 2016Q1

REPORT INFORMATION
  Report Type: Report from Study
  Country: US (occurrence: US)
  Receive Date: 20160226
  Receipt Date: 20160226
  Transmission Date: 20160526
  Serious: Yes (Hospitalization, Other)
  Sender: FDA-Public Use
  Company Number: US-AMGEN-USASL2016021564

PATIENT
  Age: 62 Year
  Sex: Female

DRUGS (2)
  1. LIVALO [Concomitant]
     Active Substance: PITAVASTATIN CALCIUM
     Dosage: 2 MG, UNK
     Dates: start: 201511
  2. REPATHA [Suspect]
     Active Substance: EVOLOCUMAB
     Indication: PRODUCT USED FOR UNKNOWN INDICATION
     Dosage: 140 MG, Q2WK
     Route: 065
     Dates: start: 201511

REACTIONS (4)
  - Gallbladder non-functioning [Not Recovered/Not Resolved]
  - Chest pain [Not Recovered/Not Resolved]
  - Vomiting [Not Recovered/Not Resolved]
  - Hepatic enzyme increased [Not Recovered/Not Resolved]

NARRATIVE: CASE EVENT DATE: 20151130
